FAERS Safety Report 4300813-0 (Version None)
Quarter: 2004Q1

REPORT INFORMATION
  Report Type: 
  Country: None (occurrence: None)
  Receive Date: 20040218
  Receipt Date: 20040204
  Transmission Date: 20041129
  Serious: Yes (Hospitalization)
  Sender: FDA-Public Use
  Company Number: USA030126344

PATIENT
  Age: 74 Year
  Sex: Female
  Weight: 82 kg

DRUGS (18)
  1. FORTEO [Suspect]
     Indication: OSTEOPOROSIS
     Dosage: 20 UG/DAY
     Dates: start: 20030109, end: 20040202
  2. ATENOLOL [Concomitant]
  3. CITRACAL (CALCIUM CITRATE) [Concomitant]
  4. FOLIC ACID [Concomitant]
  5. MULTI-VITAMIN [Concomitant]
  6. HYDROCHLOROTHIAZIDE [Concomitant]
  7. METHOTREXATE [Concomitant]
  8. NEURONTIN [Concomitant]
  9. SYNTHROID [Concomitant]
  10. VIOXX [Concomitant]
  11. VITAMIN C [Concomitant]
  12. VITAMIN E [Concomitant]
  13. ZOLOFT [Concomitant]
  14. ASPIRIN [Concomitant]
  15. NORVASC [Concomitant]
  16. AMBIEN [Concomitant]
  17. PREVACID [Concomitant]
  18. DITROPAN [Concomitant]

REACTIONS (7)
  - CELLULITIS [None]
  - CONVULSION [None]
  - INJECTION SITE HAEMORRHAGE [None]
  - INSOMNIA [None]
  - MENTAL STATUS CHANGES [None]
  - MUSCULAR WEAKNESS [None]
  - PAIN IN EXTREMITY [None]
